FAERS Safety Report 9292973 (Version 3)
Quarter: 2014Q1

REPORT INFORMATION
  Report Type: Spontaneous
  Country: US (occurrence: US)
  Receive Date: 20130516
  Receipt Date: 20140318
  Transmission Date: 20141002
  Serious: Yes (Other)
  Sender: FDA-Public Use
  Company Number: US-PFIZER INC-2013149262

PATIENT
  Sex: Female

DRUGS (2)
  1. LIPITOR [Suspect]
     Dosage: UNK
  2. ZITHROMAX [Suspect]
     Dosage: UNK

REACTIONS (4)
  - Neoplasm malignant [Unknown]
  - Osteoporosis [Unknown]
  - Cardiac valve disease [Unknown]
  - Blood potassium decreased [Unknown]
